FAERS Safety Report 9921195 (Version 1)
Quarter: 2014Q1

REPORT INFORMATION
  Report Type: Spontaneous
  Country: US (occurrence: None)
  Receive Date: 20140221
  Receipt Date: 20140221
  Transmission Date: 20141002
  Serious: Yes (Hospitalization)
  Sender: FDA-Public Use
  Company Number: None

PATIENT
  Age: 63 Year
  Sex: Female
  Weight: 77.11 kg

DRUGS (1)
  1. BRINTELLIX [Suspect]
     Indication: DEPRESSION
     Dosage: 1-10 MG TABLET 1X DAY
     Dates: start: 20140126, end: 20140127

REACTIONS (3)
  - Suicidal ideation [None]
  - Violence-related symptom [None]
  - Anger [None]
